FAERS Safety Report 9105322 (Version 1)
Quarter: 2013Q1

REPORT INFORMATION
  Report Type: Report from Study
  Country: JP (occurrence: JP)
  Receive Date: 20130220
  Receipt Date: 20130220
  Transmission Date: 20140127
  Serious: No
  Sender: FDA-Public Use
  Company Number: JP-GLAXOSMITHKLINE-B0637622A

PATIENT
  Age: 55 Year
  Sex: Female
  Weight: 55 kg

DRUGS (9)
  1. TYKERB [Suspect]
     Indication: BREAST CANCER
     Dosage: 1250MG PER DAY
     Route: 048
     Dates: start: 20090701, end: 20100502
  2. XELODA [Suspect]
     Route: 048
     Dates: start: 20050117, end: 20050925
  3. XELODA [Suspect]
     Route: 048
     Dates: start: 20090701, end: 20090805
  4. XELODA [Suspect]
     Route: 048
     Dates: start: 20090812, end: 20100502
  5. PHENOBAL [Concomitant]
     Indication: EPILEPSY
     Route: 048
     Dates: start: 20081210
  6. MYSLEE [Concomitant]
     Indication: INSOMNIA
     Route: 048
     Dates: start: 20070704, end: 20100331
  7. MYSTAN [Concomitant]
     Indication: EPILEPSY
     Route: 048
     Dates: start: 20090624
  8. MUCOSTA [Concomitant]
     Indication: GASTRITIS PROPHYLAXIS
     Route: 048
     Dates: start: 20091021
  9. ZOMETA [Concomitant]
     Indication: METASTASES TO BONE
     Route: 042
     Dates: start: 20060620, end: 20100526

REACTIONS (6)
  - Diarrhoea [Recovered/Resolved]
  - Palmar-plantar erythrodysaesthesia syndrome [Not Recovered/Not Resolved]
  - Eructation [Not Recovered/Not Resolved]
  - Vomiting [Recovering/Resolving]
  - Diarrhoea [Recovering/Resolving]
  - Decreased appetite [Not Recovered/Not Resolved]
